FAERS Safety Report 13884962 (Version 1)
Quarter: 2017Q3

REPORT INFORMATION
  Report Type: Spontaneous
  Country: GB (occurrence: GB)
  Receive Date: 20170821
  Receipt Date: 20170821
  Transmission Date: 20171127
  Serious: Yes (Other)
  Sender: FDA-Public Use
  Company Number: GB-DRREDDYS-GER/UKI/17/0092477

PATIENT
  Age: 29 Year
  Sex: Female
  Weight: 85.72 kg

DRUGS (2)
  1. SERTRALINE [Suspect]
     Active Substance: SERTRALINE HYDROCHLORIDE
     Indication: DEPRESSION SUICIDAL
     Route: 048
     Dates: start: 20170530, end: 20170602
  2. MIRTAZAPINE. [Concomitant]
     Active Substance: MIRTAZAPINE
     Indication: PRODUCT USED FOR UNKNOWN INDICATION
     Dosage: TWO MONTHS BEFORE STARTED ON SERTRALINE HAD BEEN WEANED OFF MIRTAZAPINE.
     Dates: end: 201703

REACTIONS (4)
  - Nausea [Recovered/Resolved]
  - Hot flush [Recovered/Resolved]
  - Photophobia [Recovered/Resolved]
  - Seizure [Recovered/Resolved]

NARRATIVE: CASE EVENT DATE: 20170531
